FAERS Safety Report 5002170-3 (Version None)
Quarter: 2006Q2

REPORT INFORMATION
  Report Type: 
  Country: None (occurrence: None)
  Receive Date: 20060510
  Receipt Date: 20060428
  Transmission Date: 20061013
  Serious: Yes (Other)
  Sender: FDA-Public Use
  Company Number: 0604-272

PATIENT
  Sex: Female

DRUGS (2)
  1. DUONEB [Suspect]
     Indication: CHRONIC OBSTRUCTIVE PULMONARY DISEASE
     Dates: start: 20051201, end: 20060426
  2. OXYGEN THERAPY [Concomitant]

REACTIONS (10)
  - BLOOD PRESSURE INCREASED [None]
  - CHEST DISCOMFORT [None]
  - FEELING ABNORMAL [None]
  - HEART RATE INCREASED [None]
  - MALAISE [None]
  - MIGRAINE [None]
  - PHARYNGEAL OEDEMA [None]
  - PNEUMONIA [None]
  - SHOULDER PAIN [None]
  - TREMOR [None]
